FAERS Safety Report 8544228-8 (Version None)
Quarter: 2012Q3

REPORT INFORMATION
  Report Type: 
  Country: None (occurrence: None)
  Receive Date: 20120727
  Receipt Date: 20120710
  Transmission Date: 20120928
  Serious: Yes (Hospitalization)
  Sender: FDA-Public Use
  Company Number: JP-ASTRAZENECA-2011SE69872

PATIENT
  Sex: Female

DRUGS (7)
  1. SEROQUEL [Suspect]
     Route: 048
  2. SEROQUEL [Suspect]
     Route: 048
  3. LONASEN [Suspect]
     Indication: SCHIZOPHRENIA
     Route: 048
  4. LONASEN [Suspect]
     Indication: DRUG THERAPY
     Route: 048
  5. SEROQUEL [Suspect]
     Indication: SCHIZOPHRENIA
     Route: 048
  6. SEROQUEL [Suspect]
     Indication: DRUG THERAPY
     Route: 048
  7. TOPIRAMATE [Suspect]
     Indication: ALCOHOLISM
     Route: 048

REACTIONS (3)
  - ALCOHOLISM [None]
  - MALAISE [None]
  - SOMNOLENCE [None]
